FAERS Safety Report 17555077 (Version 1)
Quarter: 2020Q1

REPORT INFORMATION
  Report Type: Spontaneous
  Country: AU (occurrence: AU)
  Receive Date: 20200318
  Receipt Date: 20200318
  Transmission Date: 20200409
  Serious: Yes (Other)
  Sender: FDA-Public Use
  Company Number: AU-ROCHE-2102758

PATIENT
  Sex: Female

DRUGS (1)
  1. MABTHERA [Suspect]
     Active Substance: RITUXIMAB
     Indication: COLD AGGLUTININS
     Dosage: FOR 4 WEEKS
     Route: 042

REACTIONS (3)
  - Autoimmune haemolytic anaemia [Unknown]
  - Intentional product use issue [Unknown]
  - Off label use [Unknown]
